FAERS Safety Report 10226758 (Version 5)
Quarter: 2014Q3

REPORT INFORMATION
  Report Type: Report from Study
  Country: CA (occurrence: CA)
  Receive Date: 20140610
  Receipt Date: 20140707
  Transmission Date: 20150326
  Serious: Yes (Death, Hospitalization, Other)
  Sender: FDA-Public Use
  Company Number: CA-ROCHE-1400733

PATIENT
  Age: 35 Year
  Sex: Female

DRUGS (15)
  1. BENADRYL [Concomitant]
     Active Substance: DIPHENHYDRAMINE HYDROCHLORIDE
     Indication: PREMEDICATION
     Route: 048
     Dates: start: 20140605, end: 20140605
  2. HERCEPTIN [Suspect]
     Active Substance: TRASTUZUMAB
     Indication: BREAST CANCER METASTATIC
     Dosage: LOADING
     Route: 042
     Dates: start: 20140314
  3. HERCEPTIN [Suspect]
     Active Substance: TRASTUZUMAB
     Dosage: MAINTENANCE
     Route: 042
     Dates: end: 2014
  4. TAXOTERE [Suspect]
     Active Substance: DOCETAXEL
     Indication: BREAST CANCER METASTATIC
     Route: 042
     Dates: start: 20140315, end: 2014
  5. PANTOLOC [Concomitant]
     Active Substance: PANTOPRAZOLE SODIUM
  6. COLACE [Concomitant]
     Active Substance: DOCUSATE SODIUM
     Dosage: AS REQUIRED
     Route: 065
  7. ATIVAN [Concomitant]
     Active Substance: LORAZEPAM
  8. FRAGMIN [Concomitant]
     Active Substance: DALTEPARIN SODIUM
  9. EFFEXOR [Concomitant]
     Active Substance: VENLAFAXINE HYDROCHLORIDE
  10. DOCETAXEL [Concomitant]
     Active Substance: DOCETAXEL
     Indication: BREAST CANCER METASTATIC
     Route: 042
     Dates: start: 2014
  11. BACTRIM [Concomitant]
     Active Substance: SULFAMETHOXAZOLE\TRIMETHOPRIM
  12. PERJETA [Suspect]
     Active Substance: PERTUZUMAB
     Dosage: LAST DOSE PRIOR TO SAE: 05/JUL/2014
     Route: 042
     Dates: start: 20140605, end: 20140605
  13. TYLENOL [Concomitant]
     Active Substance: ACETAMINOPHEN
  14. PERJETA [Suspect]
     Active Substance: PERTUZUMAB
     Indication: HER-2 POSITIVE BREAST CANCER
     Route: 042
     Dates: start: 20140516
  15. SENOKOT [Concomitant]
     Active Substance: SENNOSIDES
     Dosage: AS REQUIRED
     Route: 065

REACTIONS (8)
  - Fatigue [Unknown]
  - Haemoglobin decreased [Unknown]
  - Infusion related reaction [Recovered/Resolved]
  - Heart rate increased [Unknown]
  - Angioedema [Unknown]
  - Disease progression [Fatal]
  - Platelet count decreased [Unknown]
  - Neutrophil count decreased [Unknown]

NARRATIVE: CASE EVENT DATE: 20140408
